FAERS Safety Report 4969581-3 (Version None)
Quarter: 2006Q1

REPORT INFORMATION
  Report Type: 
  Country: None (occurrence: None)
  Receive Date: 20060127
  Receipt Date: 20041215
  Transmission Date: 20060701
  Serious: Yes (Other)
  Sender: FDA-Public Use
  Company Number: 04-11-1642

PATIENT
  Age: 38 Year
  Sex: Female
  Weight: 95.709 kg

DRUGS (7)
  1. CLOZAPINE [Suspect]
     Indication: DEPRESSION
     Dosage: 12.5-300MG QD, ORAL
     Route: 048
     Dates: start: 20041020, end: 20041122
  2. CLOZAPINE [Suspect]
     Indication: SCHIZOAFFECTIVE DISORDER
     Dosage: 12.5-300MG QD, ORAL
     Route: 048
     Dates: start: 20041020, end: 20041122
  3. VALPROIC ACID [Concomitant]
  4. METFORMIN HCL [Concomitant]
  5. PROZAC [Concomitant]
  6. ABILIFY [Concomitant]
  7. GEODON [Concomitant]

REACTIONS (1)
  - NEUTROPENIA [None]
